FAERS Safety Report 7356423-4 (Version None)
Quarter: 2011Q1

REPORT INFORMATION
  Report Type: 
  Country: None (occurrence: None)
  Receive Date: 20110316
  Receipt Date: 20110308
  Transmission Date: 20110831
  Serious: No
  Sender: FDA-Public Use
  Company Number: AR-ASTRAZENECA-2011SE13664

PATIENT
  Age: 46 Year
  Sex: Female

DRUGS (3)
  1. QUETIAPINE [Suspect]
     Indication: BIPOLAR II DISORDER
     Route: 048
     Dates: start: 20101201, end: 20110222
  2. LITHIUM [Concomitant]
     Indication: BIPOLAR DISORDER
     Route: 048
  3. L-METHYLFOLATE [Concomitant]
     Indication: BIPOLAR II DISORDER

REACTIONS (1)
  - NEUTROPENIA [None]
